FAERS Safety Report 6718604-X (Version None)
Quarter: 2010Q2

REPORT INFORMATION
  Report Type: 
  Country: None (occurrence: None)
  Receive Date: 20100510
  Receipt Date: 20100427
  Transmission Date: 20101027
  Serious: Yes (Hospitalization)
  Sender: FDA-Public Use
  Company Number: DE-GENENTECH-301436

PATIENT
  Sex: Male

DRUGS (14)
  1. MABTHERA [Suspect]
     Indication: B-CELL LYMPHOMA
     Dosage: 375 MG/M2, Q21D
     Route: 065
     Dates: start: 20080612, end: 20080901
  2. MABTHERA [Suspect]
     Dosage: 375 MG/M2, Q21D
     Route: 065
     Dates: start: 20081001, end: 20081101
  3. MABTHERA [Suspect]
     Dosage: 375 MG/M2, Q21D
     Route: 065
     Dates: start: 20081201, end: 20090201
  4. MABTHERA [Suspect]
     Dosage: 375 MG/M2, UNK
     Route: 065
     Dates: start: 20091208, end: 20100301
  5. VINCRISTINE [Concomitant]
     Indication: B-CELL LYMPHOMA
     Dosage: 1 MG, Q21D
     Dates: start: 20080612, end: 20080901
  6. VINCRISTINE [Concomitant]
     Dosage: 1 MG, Q21D
     Dates: start: 20081001, end: 20081101
  7. ADRIAMYCIN PFS [Concomitant]
     Indication: B-CELL LYMPHOMA
     Dosage: 50 MG/M2, Q21D
     Dates: start: 20080612, end: 20080901
  8. ADRIAMYCIN PFS [Concomitant]
     Dosage: 50 MG/M2, Q21D
     Dates: start: 20081001, end: 20081101
  9. CYCLOPHOSPHAMIDE [Concomitant]
     Indication: B-CELL LYMPHOMA
     Dosage: 750 MG, Q21D
     Dates: start: 20080612, end: 20080901
  10. CYCLOPHOSPHAMIDE [Concomitant]
     Dosage: 750 MG, Q21D
     Dates: start: 20081001, end: 20081101
  11. CYCLOPHOSPHAMIDE [Concomitant]
     Dosage: 250 MG/M2, UNK
     Dates: start: 20091208, end: 20100301
  12. PREDNISONE TAB [Concomitant]
     Indication: B-CELL LYMPHOMA
     Dosage: 100 MG, Q21D
     Dates: start: 20080612, end: 20080901
  13. PREDNISONE TAB [Concomitant]
     Dosage: 100 MG, Q21D
     Dates: start: 20081001, end: 20081101
  14. FLUDARABINE PHOSPHATE [Concomitant]
     Indication: B-CELL LYMPHOMA
     Dosage: 25 MG/M2, UNK
     Dates: start: 20091208, end: 20100301

REACTIONS (1)
  - PROGRESSIVE MULTIFOCAL LEUKOENCEPHALOPATHY [None]
